FAERS Safety Report 8452306-7 (Version None)
Quarter: 2012Q2

REPORT INFORMATION
  Report Type: 
  Country: None (occurrence: None)
  Receive Date: 20120620
  Receipt Date: 20120405
  Transmission Date: 20120825
  Serious: No
  Sender: FDA-Public Use
  Company Number: US-VERTEX PHARMACEUTICALS INC.-AE-2012-004926

PATIENT
  Sex: Male

DRUGS (9)
  1. RIBAVIRIN [Concomitant]
     Indication: HEPATITIS C
     Dates: start: 20120131
  2. DEPAKOTE [Concomitant]
  3. INCIVEK [Suspect]
     Indication: HEPATITIS C
     Route: 048
     Dates: start: 20120131
  4. PEGASYS [Concomitant]
     Indication: HEPATITIS C
     Route: 058
     Dates: start: 20120131
  5. EPZICOM [Concomitant]
  6. AITAZANAVIR [Concomitant]
  7. NORVIR [Concomitant]
  8. VIREAD [Concomitant]
  9. BACTRIM [Concomitant]

REACTIONS (8)
  - BLISTER [None]
  - DYSGEUSIA [None]
  - TRICHORRHEXIS [None]
  - PRURITUS [None]
  - DIARRHOEA [None]
  - HEADACHE [None]
  - NIGHT SWEATS [None]
  - NAUSEA [None]
